FAERS Safety Report 8449167-9 (Version None)
Quarter: 2012Q2

REPORT INFORMATION
  Report Type: 
  Country: None (occurrence: None)
  Receive Date: 20120619
  Receipt Date: 20120612
  Transmission Date: 20120825
  Serious: Yes (Hospitalization, Other)
  Sender: FDA-Public Use
  Company Number: CA-ABBOTT-12P-028-0945183-00

PATIENT
  Sex: Male
  Weight: 77.18 kg

DRUGS (4)
  1. SEROQUEL [Concomitant]
     Indication: PRODUCT USED FOR UNKNOWN INDICATION
     Route: 048
  2. KALETRA [Suspect]
     Indication: HIV INFECTION
     Dosage: 200MG/50MG. 2 IN 1 DAY
     Route: 048
     Dates: start: 20080501
  3. KALETRA [Suspect]
     Indication: ANTIRETROVIRAL THERAPY
  4. TRUVADA [Concomitant]
     Indication: HIV INFECTION
     Dosage: 200/300MG
     Route: 048

REACTIONS (8)
  - CARDIAC ARREST [None]
  - ROAD TRAFFIC ACCIDENT [None]
  - COMA [None]
  - FLUID RETENTION [None]
  - JOINT DISLOCATION [None]
  - LOSS OF CONSCIOUSNESS [None]
  - MUSCLE ATROPHY [None]
  - OEDEMA [None]
